FAERS Safety Report 6774873-1 (Version None)
Quarter: 2010Q2

REPORT INFORMATION
  Report Type: 
  Country: None (occurrence: None)
  Receive Date: 20100617
  Receipt Date: 20100609
  Transmission Date: 20101027
  Serious: Yes (Other)
  Sender: FDA-Public Use
  Company Number: DE-AMGEN-QUU417490

PATIENT
  Sex: Male
  Weight: 76 kg

DRUGS (10)
  1. ARANESP [Suspect]
     Indication: RENAL FAILURE CHRONIC
     Route: 042
     Dates: start: 20090501
  2. BLOPRESS [Concomitant]
     Route: 048
     Dates: start: 20090730
  3. METOPROLOL [Concomitant]
     Route: 048
     Dates: start: 20090730
  4. PANTOPRAZOLE [Concomitant]
     Route: 048
     Dates: start: 20090730
  5. FOLIC ACID [Concomitant]
     Route: 048
     Dates: start: 20090730
  6. BENSERAZIDE HYDROCHLORIDE/LEVODOPA [Concomitant]
     Route: 048
     Dates: start: 20100318
  7. CALCIUM ACETATE [Concomitant]
     Route: 048
     Dates: start: 20100318
  8. TORSEMIDE [Concomitant]
     Dates: start: 20090730, end: 20100318
  9. IRON DEXTRAN [Concomitant]
     Route: 042
     Dates: start: 20090730
  10. BLOOD, WHOLE [Concomitant]
     Dates: start: 20080601

REACTIONS (2)
  - APLASIA PURE RED CELL [None]
  - NO THERAPEUTIC RESPONSE [None]
